FAERS Safety Report 7914610-8 (Version None)
Quarter: 2011Q4

REPORT INFORMATION
  Report Type: 
  Country: None (occurrence: None)
  Receive Date: 20111115
  Receipt Date: 20111107
  Transmission Date: 20120403
  Serious: Yes (Hospitalization)
  Sender: FDA-Public Use
  Company Number: PHHY2011FR91312

PATIENT
  Sex: Female
  Weight: 36 kg

DRUGS (3)
  1. OXAZEPAM [Concomitant]
     Dosage: 10 MG, UNK
  2. ZOLEDRONOC ACID [Suspect]
     Indication: OSTEOPOROSIS
     Dosage: ANNUALLY, UNK
     Route: 042
  3. PROPRANOLOL [Concomitant]
     Indication: EXTRASYSTOLES
     Dosage: 0.5 TABLETS DAILY

REACTIONS (14)
  - LACUNAR INFARCTION [None]
  - CEREBROVASCULAR ACCIDENT [None]
  - SUPRAVENTRICULAR EXTRASYSTOLES [None]
  - IIIRD NERVE PARESIS [None]
  - HEART RATE DECREASED [None]
  - THALAMIC INFARCTION [None]
  - DIPLOPIA [None]
  - BALANCE DISORDER [None]
  - HEART RATE INCREASED [None]
  - PARAESTHESIA [None]
  - ISCHAEMIA [None]
  - VENTRICULAR EXTRASYSTOLES [None]
  - RETINAL ARTERY THROMBOSIS [None]
  - ATRIAL FIBRILLATION [None]
